FAERS Safety Report 12849899 (Version 12)
Quarter: 2019Q2

REPORT INFORMATION
  Report Type: Report from Study
  Country: US (occurrence: US)
  Receive Date: 20161014
  Receipt Date: 20190527
  Transmission Date: 20190711
  Serious: Yes (Death, Hospitalization, Other)
  Sender: FDA-Public Use
  Company Number: US-ROCHE-1818102

PATIENT
  Age: 73 Year
  Sex: Male
  Weight: 86.26 kg

DRUGS (7)
  1. ESBRIET [Suspect]
     Active Substance: PIRFENIDONE
     Route: 048
     Dates: start: 20091201
  2. ESBRIET [Suspect]
     Active Substance: PIRFENIDONE
     Route: 048
     Dates: start: 20161215, end: 20170420
  3. ESBRIET [Suspect]
     Active Substance: PIRFENIDONE
     Route: 048
  4. ESBRIET [Suspect]
     Active Substance: PIRFENIDONE
     Dosage: 5 PILLS A DAY
     Route: 048
  5. ESBRIET [Suspect]
     Active Substance: PIRFENIDONE
     Indication: IDIOPATHIC PULMONARY FIBROSIS
     Route: 048
     Dates: start: 201412, end: 20170701
  6. ESBRIET [Suspect]
     Active Substance: PIRFENIDONE
     Dosage: ONGOING: YES
     Route: 048
  7. ESBRIET [Suspect]
     Active Substance: PIRFENIDONE
     Indication: IDIOPATHIC PULMONARY FIBROSIS
     Route: 048
     Dates: start: 201412

REACTIONS (19)
  - Gastroenteritis norovirus [Recovered/Resolved]
  - Dyspnoea [Unknown]
  - Vomiting [Recovered/Resolved]
  - Malaise [Unknown]
  - Condition aggravated [Unknown]
  - Oxygen saturation decreased [Unknown]
  - Diverticulitis [Recovered/Resolved]
  - Nasopharyngitis [Unknown]
  - Cardiac arrest [Fatal]
  - Fatigue [Unknown]
  - Drug ineffective [Unknown]
  - Pyrexia [Unknown]
  - Infection [Unknown]
  - Pulmonary mass [Unknown]
  - Diarrhoea [Unknown]
  - Nausea [Unknown]
  - Dysphonia [Unknown]
  - Heart rate increased [Recovering/Resolving]
  - Oxygen saturation decreased [Unknown]

NARRATIVE: CASE EVENT DATE: 201412
